FAERS Safety Report 7569243-2 (Version None)
Quarter: 2011Q2

REPORT INFORMATION
  Report Type: 
  Country: None (occurrence: None)
  Receive Date: 20110623
  Receipt Date: 20110616
  Transmission Date: 20111010
  Serious: Yes (Other)
  Sender: FDA-Public Use
  Company Number: GB-CEPHALON-2011001931

PATIENT
  Sex: Female

DRUGS (2)
  1. ATRACURIUM BESYLATE [Suspect]
     Indication: ACUTE PROMYELOCYTIC LEUKAEMIA
     Route: 048
     Dates: start: 20110303, end: 20110421
  2. ARSENIC TRIOXIDE [Suspect]
     Indication: ACUTE PROMYELOCYTIC LEUKAEMIA
     Route: 041
     Dates: start: 20110303, end: 20110421

REACTIONS (3)
  - INTRACRANIAL PRESSURE INCREASED [None]
  - VITH NERVE PARALYSIS [None]
  - VISUAL IMPAIRMENT [None]
